FAERS Safety Report 12555924 (Version 1)
Quarter: 2016Q3

REPORT INFORMATION
  Report Type: Spontaneous
  Country: GB (occurrence: GB)
  Receive Date: 20160714
  Receipt Date: 20160714
  Transmission Date: 20161109
  Serious: Yes (Disabling)
  Sender: FDA-Public Use
  Company Number: GB-TEVA-674246ACC

PATIENT
  Age: 31 Year
  Sex: Female

DRUGS (1)
  1. TERBINAFINE. [Suspect]
     Active Substance: TERBINAFINE
     Indication: FUNGAL SKIN INFECTION
     Dosage: 250 MILLIGRAM DAILY;
     Route: 048
     Dates: start: 20160613, end: 20160622

REACTIONS (2)
  - Deafness neurosensory [Not Recovered/Not Resolved]
  - Vertigo [Not Recovered/Not Resolved]

NARRATIVE: CASE EVENT DATE: 20160620
